FAERS Safety Report 9434000 (Version 1)
Quarter: 2013Q3

REPORT INFORMATION
  Report Type: Spontaneous
  Country: US (occurrence: US)
  Receive Date: 20130801
  Receipt Date: 20130801
  Transmission Date: 20140515
  Serious: No
  Sender: FDA-Public Use
  Company Number: US-009507513-1307USA015287

PATIENT
  Age: 41 Year
  Sex: Female

DRUGS (3)
  1. SAPHRIS [Suspect]
     Indication: SCHIZOAFFECTIVE DISORDER
     Dosage: STRENGTH: 10MG AND 5MG; DOSE: 15MG (ONE 10MG TABLET AND ONE 5MG TABLET) DAILY
     Route: 060
  2. CELEXA [Concomitant]
  3. KLONOPIN [Concomitant]

REACTIONS (1)
  - Weight increased [Recovering/Resolving]
